FAERS Safety Report 6119959-X (Version None)
Quarter: 2009Q1

REPORT INFORMATION
  Report Type: 
  Country: None (occurrence: None)
  Receive Date: 20090316
  Receipt Date: 20090308
  Transmission Date: 20090719
  Serious: Yes (Hospitalization)
  Sender: FDA-Public Use
  Company Number: JP-GENENTECH-278374

PATIENT
  Sex: Male

DRUGS (16)
  1. RITUXIMAB [Suspect]
     Indication: MANTLE CELL LYMPHOMA
     Dosage: 713 MG, UNK
     Route: 042
     Dates: start: 20081017
  2. FLUDARA [Concomitant]
     Indication: LYMPHOMA
     Dosage: 80 MG, UNK
     Dates: start: 20081018
  3. ALLOPURINOL [Concomitant]
     Indication: TUMOUR LYSIS SYNDROME
     Dosage: 200 MG, UNK
     Dates: start: 20081023, end: 20081025
  4. DIOVAN [Concomitant]
     Indication: HYPERTENSION
     Dosage: 160 MG, QD
     Route: 048
  5. AMLODINE [Concomitant]
     Indication: HYPERTENSION
     Dosage: 5 MG, QD
     Route: 048
  6. BEPRIDIL [Concomitant]
     Indication: PROPHYLAXIS
     Dosage: 200 MG, QD
     Route: 048
  7. WARFARIN SODIUM [Concomitant]
     Indication: PROPHYLAXIS
     Dosage: 3.5 MG, QD
     Route: 048
  8. ZANTAC [Concomitant]
     Indication: GASTROINTESTINAL ULCER
     Dosage: 300 MG, QD
  9. CHLOR-TRIMETON [Concomitant]
     Indication: PROPHYLAXIS
     Dosage: 10 MG, SINGLE
     Dates: start: 20081017, end: 20081017
  10. CHLOR-TRIMETON [Concomitant]
     Dosage: 10 MG, SINGLE
     Dates: start: 20081110, end: 20081110
  11. IBUPROFEN TABLETS [Concomitant]
     Indication: PROPHYLAXIS
     Dosage: 200 MG, SINGLE
     Dates: start: 20081017, end: 20081017
  12. IBUPROFEN TABLETS [Concomitant]
     Dosage: 200 MG, SINGLE
     Dates: start: 20081110, end: 20081110
  13. ITRACONAZOLE [Concomitant]
     Indication: PROPHYLAXIS
     Dosage: 200 MG, UNK
     Route: 048
     Dates: start: 20081017, end: 20081027
  14. ZOVIRAX [Concomitant]
     Indication: PROPHYLAXIS
     Dosage: 200 MG, UNK
     Dates: start: 20081017, end: 20081027
  15. FUROSEMIDE [Concomitant]
     Indication: OEDEMA
     Dosage: 20 MG, PRN
     Dates: start: 20081018
  16. BENAMBAX [Concomitant]
     Indication: PROPHYLAXIS
     Dosage: 300 MG, UNK
     Dates: start: 20081022

REACTIONS (3)
  - ARTHRALGIA [None]
  - ERYTHEMA [None]
  - PYREXIA [None]
